FAERS Safety Report 4942786-3 (Version None)
Quarter: 2006Q1

REPORT INFORMATION
  Report Type: 
  Country: None (occurrence: None)
  Receive Date: 20060309
  Receipt Date: 20060302
  Transmission Date: 20060701
  Serious: Yes (Other)
  Sender: FDA-Public Use
  Company Number: 2006BI003493

PATIENT
  Age: 20 Year
  Sex: Female
  Weight: 50 kg

DRUGS (4)
  1. AVONEX [Suspect]
     Indication: MULTIPLE SCLEROSIS
     Dosage: 30 UG;QW;IM
     Route: 030
     Dates: start: 19981201
  2. AMITRIPTYLINE HCL [Concomitant]
  3. CIPRAMIL [Concomitant]
  4. LEVONORGESTREL AND ETHINYL ESTRADIOL [Concomitant]

REACTIONS (1)
  - VULVAL ULCERATION [None]
